FAERS Safety Report 7634180-1 (Version None)
Quarter: 2011Q3

REPORT INFORMATION
  Report Type: 
  Country: None (occurrence: None)
  Receive Date: 20110725
  Receipt Date: 20110711
  Transmission Date: 20111222
  Serious: Yes (Other)
  Sender: FDA-Public Use
  Company Number: US-BAYER-2011-060766

PATIENT
  Age: 62 Year
  Sex: Female
  Weight: 77.098 kg

DRUGS (2)
  1. LEVOXYL [Concomitant]
     Dosage: UNK
     Dates: start: 20110710
  2. ALEVE (CAPLET) [Suspect]
     Indication: ARTHRALGIA
     Dosage: 220 MG, QD
     Route: 048
     Dates: start: 20110710, end: 20110711

REACTIONS (6)
  - ABNORMAL BEHAVIOUR [None]
  - SOMNOLENCE [None]
  - MEMORY IMPAIRMENT [None]
  - LETHARGY [None]
  - DISORIENTATION [None]
  - DIZZINESS [None]
